FAERS Safety Report 4857785-X (Version None)
Quarter: 2005Q4

REPORT INFORMATION
  Report Type: 
  Country: None (occurrence: None)
  Receive Date: 20051219
  Receipt Date: 20050405
  Transmission Date: 20060501
  Serious: No
  Sender: FDA-Public Use
  Company Number: US-GLAXOSMITHKLINE-A0552721A

PATIENT
  Age: 38 Year
  Sex: Female

DRUGS (1)
  1. NICODERM CQ [Suspect]
     Dates: start: 20050331, end: 20050404

REACTIONS (8)
  - ABDOMINAL DISTENSION [None]
  - ANXIETY [None]
  - DIARRHOEA [None]
  - FATIGUE [None]
  - FREQUENT BOWEL MOVEMENTS [None]
  - HEART RATE INCREASED [None]
  - PANIC ATTACK [None]
  - TREMOR [None]
